FAERS Safety Report 8217965-2 (Version None)
Quarter: 2012Q1

REPORT INFORMATION
  Report Type: 
  Country: None (occurrence: None)
  Receive Date: 20120305
  Receipt Date: 20111118
  Transmission Date: 20120608
  Serious: No
  Sender: FDA-Public Use
  Company Number: 1000025617

PATIENT
  Age: 81 Year
  Sex: Female

DRUGS (10)
  1. DALIRESP [Suspect]
     Indication: CHRONIC OBSTRUCTIVE PULMONARY DISEASE
     Dosage: 500 MCG (500 MCG, 1 IN 1 D), ORAL
     Route: 048
     Dates: start: 20110901, end: 20111113
  2. DALIRESP [Suspect]
     Indication: CHRONIC OBSTRUCTIVE PULMONARY DISEASE
     Dosage: 500 MCG (500 MCG, 1 IN 1 D), ORAL
     Route: 048
     Dates: start: 20111116
  3. THEOPHYLLINE [Concomitant]
  4. POTASSIUM CHLORIDE [Concomitant]
  5. NEXIUM [Concomitant]
  6. DILTIAZEM HYDROCHLORIDE [Concomitant]
  7. CALCIUM CARBONATE [Concomitant]
  8. ALBUTEROL [Concomitant]
  9. LASIX [Concomitant]
  10. SYNTHROID [Concomitant]

REACTIONS (2)
  - DYSPNOEA [None]
  - WEIGHT DECREASED [None]
